FAERS Safety Report 6781435-9 (Version None)
Quarter: 2010Q2

REPORT INFORMATION
  Report Type: 
  Country: None (occurrence: None)
  Receive Date: 20100621
  Receipt Date: 20100609
  Transmission Date: 20101027
  Serious: Yes (Other)
  Sender: FDA-Public Use
  Company Number: US-SANOFI-AVENTIS-2010SA033828

PATIENT
  Age: 40 Year
  Sex: Male

DRUGS (7)
  1. MULTAQ [Suspect]
     Route: 048
     Dates: start: 20100101
  2. ASPIRIN [Concomitant]
  3. COZAAR [Concomitant]
  4. ZOCOR [Concomitant]
  5. DIGOXIN [Concomitant]
  6. COREG [Concomitant]
     Route: 048
  7. COUMADIN [Concomitant]

REACTIONS (4)
  - COUGH [None]
  - MALAISE [None]
  - OFF LABEL USE [None]
  - PULMONARY OEDEMA [None]
